FAERS Safety Report 15402614 (Version 2)
Quarter: 2018Q4

REPORT INFORMATION
  Report Type: Report from Study
  Country: JP (occurrence: JP)
  Receive Date: 20180919
  Receipt Date: 20181121
  Transmission Date: 20190204
  Serious: Yes (Death, Life-Threatening, Hospitalization, Other)
  Sender: FDA-Public Use
  Company Number: JP-INCYTE CORPORATION-2015IN005998

PATIENT

DRUGS (10)
  1. RED BLOOD CELLS [Concomitant]
     Active Substance: HUMAN RED BLOOD CELL
     Indication: MYELOFIBROSIS
     Dosage: 2 IU, UNK
     Route: 065
  2. JAKAVI [Suspect]
     Active Substance: RUXOLITINIB
     Indication: MYELOFIBROSIS
     Dosage: 5 MG, BID
     Route: 048
     Dates: start: 20141126, end: 20150316
  3. JAKAVI [Suspect]
     Active Substance: RUXOLITINIB
     Dosage: 15 MG, BID
     Route: 048
     Dates: start: 20160726, end: 20161108
  4. JAKAVI [Suspect]
     Active Substance: RUXOLITINIB
     Dosage: 35 MG (IN TWO DIVIDED DOSES), BID
     Route: 048
     Dates: start: 20161109, end: 20161213
  5. JAKAVI [Suspect]
     Active Substance: RUXOLITINIB
     Dosage: 10 MG, BID
     Route: 048
     Dates: start: 20150317, end: 20160624
  6. JAKAVI [Suspect]
     Active Substance: RUXOLITINIB
     Dosage: 42.5 MG, BID
     Route: 048
     Dates: start: 20170608, end: 20170705
  7. JAKAVI [Suspect]
     Active Substance: RUXOLITINIB
     Dosage: 45 MG, BID (IN TWO DIVIDED DOSE)
     Route: 048
     Dates: start: 20170706, end: 20170711
  8. JAKAVI [Suspect]
     Active Substance: RUXOLITINIB
     Dosage: 20 MG, BID
     Route: 048
     Dates: start: 20161214, end: 20170607
  9. JAKAVI [Suspect]
     Active Substance: RUXOLITINIB
     Dosage: 25 MG, BID
     Route: 048
     Dates: start: 20170712, end: 20170905
  10. JAKAVI [Suspect]
     Active Substance: RUXOLITINIB
     Dosage: 25 MG (IN TWO DIVIDED DOSES), BID
     Route: 048
     Dates: start: 20160625, end: 20160725

REACTIONS (4)
  - Platelet count decreased [Not Recovered/Not Resolved]
  - Myelofibrosis [Not Recovered/Not Resolved]
  - White blood cell count increased [Not Recovered/Not Resolved]
  - Cerebral haemorrhage [Fatal]

NARRATIVE: CASE EVENT DATE: 20150316
